FAERS Safety Report 5571153-7 (Version None)
Quarter: 2007Q4

REPORT INFORMATION
  Report Type: 
  Country: None (occurrence: None)
  Receive Date: 20071221
  Receipt Date: 20061122
  Transmission Date: 20080405
  Serious: No
  Sender: FDA-Public Use
  Company Number: A0628458A

PATIENT
  Age: 44 Year
  Sex: Female

DRUGS (8)
  1. FLONASE [Suspect]
     Dosage: 1SPR TWICE PER DAY
     Route: 045
  2. XALATAN [Concomitant]
  3. FENTANYL [Concomitant]
  4. NEXIUM [Concomitant]
  5. VALIUM [Concomitant]
  6. VICODIN [Concomitant]
  7. NASONEX [Concomitant]
  8. PROVENTIL [Concomitant]

REACTIONS (2)
  - DRUG INEFFECTIVE [None]
  - WHEEZING [None]
